FAERS Safety Report 20639300 (Version 1)
Quarter: 2022Q1

REPORT INFORMATION
  Report Type: Spontaneous
  Country: JP (occurrence: JP)
  Receive Date: 20220326
  Receipt Date: 20220326
  Transmission Date: 20220423
  Serious: Yes (Hospitalization, Other)
  Sender: FDA-Public Use
  Company Number: JP-LUPIN PHARMACEUTICALS INC.-2022-04102

PATIENT
  Age: 7 Decade
  Sex: Female

DRUGS (27)
  1. VORICONAZOLE [Suspect]
     Active Substance: VORICONAZOLE
     Indication: Pneumonia fungal
     Dosage: 800 MILLIGRAM, QD
     Route: 065
  2. VORICONAZOLE [Suspect]
     Active Substance: VORICONAZOLE
     Dosage: 600 MILLIGRAM, QD
     Route: 065
  3. QUETIAPINE FUMARATE [Suspect]
     Active Substance: QUETIAPINE FUMARATE
     Indication: Schizophrenia
     Dosage: 600 MILLIGRAM, QD
     Route: 065
  4. QUETIAPINE FUMARATE [Suspect]
     Active Substance: QUETIAPINE FUMARATE
     Dosage: 12.5 MILLIGRAM, QD
     Route: 065
  5. OLANZAPINE [Suspect]
     Active Substance: OLANZAPINE
     Indication: Schizophrenia
     Dosage: 20 MILLIGRAM, QD
     Route: 065
  6. BROTIZOLAM [Suspect]
     Active Substance: BROTIZOLAM
     Indication: Schizophrenia
     Dosage: 0.25 MILLIGRAM, QD
     Route: 065
  7. FLUNITRAZEPAM [Suspect]
     Active Substance: FLUNITRAZEPAM
     Indication: Schizophrenia
     Dosage: 4 MILLIGRAM, QD
     Route: 065
  8. FLUNITRAZEPAM [Suspect]
     Active Substance: FLUNITRAZEPAM
     Indication: Insomnia
     Dosage: 5 MILLIGRAM, QD
     Route: 065
  9. BROMAZEPAM [Suspect]
     Active Substance: BROMAZEPAM
     Indication: Schizophrenia
     Dosage: 15 MILLIGRAM, QD
     Route: 065
  10. DANTROLENE [Suspect]
     Active Substance: DANTROLENE
     Indication: Neuroleptic malignant syndrome
     Dosage: 40 MILLIGRAM, QD
     Route: 065
  11. DANTROLENE [Suspect]
     Active Substance: DANTROLENE
     Dosage: 60 MILLIGRAM, QD
     Route: 065
  12. DANTROLENE [Suspect]
     Active Substance: DANTROLENE
     Dosage: 100 MILLIGRAM, QD
     Route: 065
  13. DANTROLENE [Suspect]
     Active Substance: DANTROLENE
     Dosage: DOSE REDUCED
     Route: 065
  14. BROMOCRIPTINE [Suspect]
     Active Substance: BROMOCRIPTINE
     Indication: Neuroleptic malignant syndrome
     Dosage: 7.5 MILLIGRAM, QD
     Route: 065
  15. BROMOCRIPTINE [Suspect]
     Active Substance: BROMOCRIPTINE
     Dosage: 17.5 MILLIGRAM, QD
     Route: 065
  16. BROMOCRIPTINE [Suspect]
     Active Substance: BROMOCRIPTINE
     Dosage: DOSE REDUCED
     Route: 065
  17. AMANTADINE [Suspect]
     Active Substance: AMANTADINE
     Indication: Neuroleptic malignant syndrome
     Dosage: 300 MILLIGRAM, QD
     Route: 065
  18. AMANTADINE [Suspect]
     Active Substance: AMANTADINE
     Dosage: DOSE WAS REDUCED
     Route: 065
  19. LEVODOPA [Suspect]
     Active Substance: LEVODOPA
     Indication: Neuroleptic malignant syndrome
     Dosage: 25 MILLIGRAM, QD
     Route: 065
  20. LEVODOPA [Suspect]
     Active Substance: LEVODOPA
     Dosage: DOSE WAS REDUCED
     Route: 065
  21. MICAFUNGIN [Suspect]
     Active Substance: MICAFUNGIN
     Indication: Pneumonia fungal
     Dosage: UNK
     Route: 065
  22. MICAFUNGIN [Suspect]
     Active Substance: MICAFUNGIN
     Dosage: 150 MILLIGRAM, QD
     Route: 065
  23. DIAZEPAM [Suspect]
     Active Substance: DIAZEPAM
     Indication: Insomnia
     Dosage: 5 MILLIGRAM, QD
     Route: 065
  24. RHUBARB [Concomitant]
     Active Substance: RHUBARB
     Indication: Product used for unknown indication
     Dosage: 9 GRAM, QD
     Route: 065
  25. MAGNESIUM OXIDE [Concomitant]
     Active Substance: MAGNESIUM OXIDE
     Indication: Product used for unknown indication
     Dosage: 9 GRAM, QD
     Route: 065
  26. REBAMIPIDE [Concomitant]
     Active Substance: REBAMIPIDE
     Indication: Product used for unknown indication
     Dosage: 300 MILLIGRAM, QD
     Route: 065
  27. PROPOFOL [Concomitant]
     Active Substance: PROPOFOL
     Indication: Sedation
     Dosage: 100 MILLIGRAM
     Route: 042

REACTIONS (2)
  - Malignant catatonia [Recovering/Resolving]
  - Drug ineffective [Unknown]
